FAERS Safety Report 10271982 (Version 3)
Quarter: 2014Q4

REPORT INFORMATION
  Report Type: Spontaneous
  Country: IN (occurrence: IN)
  Receive Date: 20140702
  Receipt Date: 20141203
  Transmission Date: 20150528
  Serious: Yes (Hospitalization)
  Sender: FDA-Public Use
  Company Number: PHHY2014IN079569

PATIENT
  Age: 13 Year
  Sex: Male

DRUGS (1)
  1. ASUNRA [Suspect]
     Active Substance: DEFERASIROX
     Indication: THALASSAEMIA BETA
     Dosage: 30 MG/KG/DAY
     Route: 048

REACTIONS (2)
  - Cardiac disorder [Recovered/Resolved]
  - Angina pectoris [Recovered/Resolved]
